FAERS Safety Report 9714283 (Version 2)
Quarter: 2013Q4

REPORT INFORMATION
  Report Type: Spontaneous
  Country: US (occurrence: US)
  Receive Date: 20131126
  Receipt Date: 20131126
  Transmission Date: 20140711
  Serious: No
  Sender: FDA-Public Use
  Company Number: US-GILEAD-2008-0018801

PATIENT
  Age: 82 Year
  Sex: Female
  Weight: 81.65 kg

DRUGS (10)
  1. LETAIRIS [Suspect]
     Indication: PULMONARY ARTERIAL HYPERTENSION
     Route: 048
     Dates: start: 20080923, end: 20081104
  2. COUMADIN [Concomitant]
  3. ALDACTONE [Concomitant]
  4. LASIX [Concomitant]
  5. SYNTHROID [Concomitant]
  6. LANOXIN [Concomitant]
  7. MULTIVITAMIN [Concomitant]
  8. GLUCOSAMINE-CHONDR [Concomitant]
  9. CALCIUM +D [Concomitant]
  10. TOPROL XL [Concomitant]

REACTIONS (4)
  - Local swelling [Recovered/Resolved]
  - Dyspnoea [Recovered/Resolved]
  - Generalised oedema [Recovered/Resolved]
  - Weight increased [Recovered/Resolved]
